FAERS Safety Report 9124384 (Version 3)
Quarter: 2013Q1

REPORT INFORMATION
  Report Type: Report from Study
  Country: DE (occurrence: DE)
  Receive Date: 20130227
  Receipt Date: 20130312
  Transmission Date: 20140127
  Serious: Yes (Other)
  Sender: FDA-Public Use
  Company Number: DE-ROCHE-1195304

PATIENT
  Sex: Male

DRUGS (3)
  1. RANIBIZUMAB [Suspect]
     Indication: RETINAL VEIN OCCLUSION
     Dosage: LAST DOSE PRIOR TO EVENT WAS ON 17/SEP/2012
     Route: 050
     Dates: start: 20120723
  2. RANIBIZUMAB [Suspect]
     Route: 050
     Dates: start: 20120820
  3. RANIBIZUMAB [Suspect]
     Route: 050
     Dates: start: 20120917

REACTIONS (3)
  - Vitreous haemorrhage [Recovered/Resolved]
  - Neovascularisation [Unknown]
  - Retinopathy proliferative [Unknown]
